FAERS Safety Report 9952010 (Version 1)
Quarter: 2014Q1

REPORT INFORMATION
  Report Type: Report from Study
  Country: US (occurrence: US)
  Receive Date: 20140304
  Receipt Date: 20140304
  Transmission Date: 20141002
  Serious: No
  Sender: FDA-Public Use
  Company Number: US-ABBVIE-13P-163-1072763-00

PATIENT
  Age: 77 Year
  Sex: Female

DRUGS (7)
  1. HUMIRA [Suspect]
     Indication: RHEUMATOID ARTHRITIS
     Dates: start: 201210
  2. CLONIDINE [Concomitant]
     Indication: HYPERTENSION
  3. LOPRESSOR [Concomitant]
     Indication: HYPERTENSION
     Dosage: 1/2 TABLET, TWICE DAILY
  4. SOTALOL [Concomitant]
     Indication: HEART RATE IRREGULAR
     Dosage: 1/2 TABLET, TWICE DAILY
  5. MOBIC [Concomitant]
     Indication: OSTEOARTHRITIS
     Dosage: DAILY
  6. FOLIC ACID [Concomitant]
     Indication: PRODUCT USED FOR UNKNOWN INDICATION
     Dosage: DAILY
  7. LEVOTHYROXINE [Concomitant]
     Indication: HYPOTHYROIDISM
     Dosage: DAILY

REACTIONS (3)
  - Oral pain [Recovering/Resolving]
  - Stomatitis [Recovering/Resolving]
  - Back pain [Unknown]
